FAERS Safety Report 15451415 (Version 5)
Quarter: 2019Q2

REPORT INFORMATION
  Report Type: Spontaneous
  Country: US (occurrence: US)
  Receive Date: 20181001
  Receipt Date: 20190507
  Transmission Date: 20190711
  Serious: No
  Sender: FDA-Public Use
  Company Number: US-PFIZER INC-2018390511

PATIENT
  Age: 70 Year
  Sex: Female

DRUGS (1)
  1. HYDROXYZINE PAMOATE. [Suspect]
     Active Substance: HYDROXYZINE PAMOATE
     Indication: SLEEP DISORDER
     Dosage: UNK

REACTIONS (7)
  - Sedation [Unknown]
  - Off label use [Unknown]
  - Nightmare [Unknown]
  - Product use in unapproved indication [Unknown]
  - Drug ineffective [Unknown]
  - Hypertension [Unknown]
  - Fatigue [Unknown]
